FAERS Safety Report 10392942 (Version 2)
Quarter: 2014Q3

REPORT INFORMATION
  Report Type: Report from Study
  Country: US (occurrence: None)
  Receive Date: 20140815
  Receipt Date: 20140825
  Transmission Date: 20150326
  Serious: Yes (Hospitalization, Other)
  Sender: FDA-Public Use
  Company Number: ADR-2014-01417

PATIENT
  Age: 58 Year
  Sex: Female

DRUGS (2)
  1. BACLOFEN INTRATHECAL [Suspect]
     Active Substance: BACLOFEN
     Indication: MULTIPLE SCLEROSIS
  2. BAF312 [Suspect]
     Active Substance: SIPONIMOD
     Dates: start: 20140529

REACTIONS (7)
  - Fatigue [None]
  - Vomiting [None]
  - Disorientation [None]
  - Therapy change [None]
  - Nausea [None]
  - Mental status changes [None]
  - Lethargy [None]

NARRATIVE: CASE EVENT DATE: 20140731
